FAERS Safety Report 23598571 (Version 1)
Quarter: 2024Q1

REPORT INFORMATION
  Report Type: Spontaneous
  Country: FR (occurrence: FR)
  Receive Date: 20240306
  Receipt Date: 20240306
  Transmission Date: 20240410
  Serious: Yes (Other)
  Sender: FDA-Public Use
  Company Number: FR-AFSSAPS-SE2024000143

PATIENT
  Age: 37 Year
  Sex: Female
  Weight: 85 kg

DRUGS (6)
  1. ACETAMINOPHEN [Suspect]
     Active Substance: ACETAMINOPHEN
     Indication: Back pain
     Dosage: 3 GRAM, ONCE A DAY
     Route: 065
     Dates: start: 20240113, end: 20240115
  2. ACETAMINOPHEN [Suspect]
     Active Substance: ACETAMINOPHEN
     Dosage: 5.5 GRAM (1 TOTAL)
     Route: 065
     Dates: start: 20240116, end: 20240116
  3. ACETAMINOPHEN [Suspect]
     Active Substance: ACETAMINOPHEN
     Dosage: 7 GRAM (1 TOTAL)
     Route: 065
     Dates: start: 20240117, end: 20240117
  4. ACETAMINOPHEN [Suspect]
     Active Substance: ACETAMINOPHEN
     Dosage: 7 GRAM (1 TOTAL)
     Route: 065
     Dates: start: 20240118, end: 20240118
  5. CODEINE [Suspect]
     Active Substance: CODEINE
     Indication: Back pain
     Dosage: 90 MILLIGRAM, ONCE A DAY (30 MG MATIN MIDI ET SOIR)
     Route: 065
     Dates: start: 20240113, end: 20240119
  6. KETOPROFEN [Concomitant]
     Active Substance: KETOPROFEN
     Indication: Back pain
     Dosage: 200 MILLIGRAM, ONCE A DAY (100 MG MATIN ET SOIR)
     Route: 048
     Dates: start: 20240113, end: 20240119

REACTIONS (3)
  - Hepatic cytolysis [Recovered/Resolved]
  - Sphincter of Oddi dysfunction [Recovered/Resolved]
  - Incorrect dosage administered [Recovered/Resolved]

NARRATIVE: CASE EVENT DATE: 20240119
